FAERS Safety Report 17131962 (Version 1)
Quarter: 2019Q4

REPORT INFORMATION
  Report Type: Spontaneous
  Country: US (occurrence: US)
  Receive Date: 20191209
  Receipt Date: 20191209
  Transmission Date: 20200122
  Serious: No
  Sender: FDA-Public Use
  Company Number: US-UCBSA-2016041263

PATIENT
  Age: 19 Year
  Sex: Female
  Weight: 22.68 kg

DRUGS (2)
  1. CIMZIA [Suspect]
     Active Substance: CERTOLIZUMAB PEGOL
     Indication: ANKYLOSING SPONDYLITIS
     Dosage: 400 MG, EV 4 WEEKS
     Route: 058
     Dates: start: 2016, end: 201612
  2. ETODOLAC. [Concomitant]
     Active Substance: ETODOLAC
     Indication: PAIN
     Dosage: UNK DAILY

REACTIONS (2)
  - Depression [Recovered/Resolved]
  - Injection site bruising [Recovered/Resolved]

NARRATIVE: CASE EVENT DATE: 2016
